FAERS Safety Report 14356710 (Version 3)
Quarter: 2018Q1

REPORT INFORMATION
  Report Type: Spontaneous
  Country: GB (occurrence: GB)
  Receive Date: 20180105
  Receipt Date: 20180129
  Transmission Date: 20180509
  Serious: Yes (Other)
  Sender: FDA-Public Use
  Company Number: GB-PFIZER INC-2018000543

PATIENT
  Age: 71 Year
  Sex: Male

DRUGS (4)
  1. GELOFUSIN [Concomitant]
     Active Substance: GELATIN\POTASSIUM CHLORIDE\SODIUM CHLORIDE
     Indication: RECTAL POLYP
     Dosage: UNK
     Route: 050
  2. METHYLENE BLUE. [Concomitant]
     Active Substance: METHYLENE BLUE
     Indication: RECTAL POLYP
     Dosage: UNK
     Route: 050
  3. SALINE [Concomitant]
     Active Substance: SODIUM CHLORIDE
     Dosage: UNK
     Route: 042
  4. EPINEPHRINE. [Suspect]
     Active Substance: EPINEPHRINE
     Indication: RECTAL POLYP
     Dosage: 1:100,000 (130 ML) OF EPINEPHRINE
     Route: 050

REACTIONS (1)
  - Acute coronary syndrome [Unknown]
